FAERS Safety Report 4626306-9 (Version None)
Quarter: 2005Q2

REPORT INFORMATION
  Report Type: 
  Country: None (occurrence: None)
  Receive Date: 20050325
  Receipt Date: 20050117
  Transmission Date: 20051028
  Serious: No
  Sender: FDA-Public Use
  Company Number: USA050188512

PATIENT
  Sex: Male

DRUGS (1)
  1. FORTEO [Suspect]

REACTIONS (2)
  - FATIGUE [None]
  - RHEUMATOID ARTHRITIS [None]
